FAERS Safety Report 4550046-8 (Version None)
Quarter: 2005Q1

REPORT INFORMATION
  Report Type: 
  Country: None (occurrence: None)
  Receive Date: 20050112
  Receipt Date: 20041223
  Transmission Date: 20050727
  Serious: Yes (Disabling)
  Sender: FDA-Public Use
  Company Number: PHBS2004PE17301

PATIENT
  Age: 60 Year
  Sex: Male

DRUGS (7)
  1. EXELON [Suspect]
     Indication: DEMENTIA ALZHEIMER'S TYPE
     Dosage: 3 MG, BID
     Route: 048
  2. EXELON [Suspect]
     Dosage: 4.5 MG, BID
     Route: 048
  3. EXELON [Suspect]
     Dosage: 4.5 MG, QD
     Route: 048
  4. EXELON [Suspect]
     Dosage: 1.5 MG, BID
     Route: 048
     Dates: start: 20040402
  5. EXELON [Suspect]
     Dosage: 3 MG, BID
  6. ENALAPRIL [Concomitant]
     Dosage: 10 MG/D
  7. INSULIN [Concomitant]

REACTIONS (9)
  - ABDOMINAL DISTENSION [None]
  - DECREASED APPETITE [None]
  - GASTRITIS [None]
  - HAEMANGIOMA OF LIVER [None]
  - NAUSEA [None]
  - OESOPHAGITIS [None]
  - SOMNOLENCE [None]
  - VOMITING [None]
  - WEIGHT DECREASED [None]
